FAERS Safety Report 7381819-4 (Version None)
Quarter: 2011Q1

REPORT INFORMATION
  Report Type: 
  Country: None (occurrence: None)
  Receive Date: 20110329
  Receipt Date: 20110303
  Transmission Date: 20110831
  Serious: Yes (Death)
  Sender: FDA-Public Use
  Company Number: PHHY2011JP24573

PATIENT
  Age: 63 Year
  Sex: Male

DRUGS (10)
  1. RIFAMPICIN [Suspect]
     Indication: TUBERCULOSIS
     Dosage: 450 MG, UNK
     Route: 048
     Dates: start: 20050218, end: 20050221
  2. PYRAZINAMIDE [Suspect]
     Indication: TUBERCULOSIS
     Dosage: 1500 MG, UNK
     Route: 048
     Dates: start: 20050218, end: 20050221
  3. ESANBUTOL [Suspect]
     Dosage: 750 MG, UNK
     Route: 048
     Dates: start: 20050302, end: 20050519
  4. ISONIAZID [Suspect]
     Indication: TUBERCULOSIS
     Dosage: 400 MG, UNK
     Dates: start: 20050218
  5. ISONIAZID [Suspect]
     Dosage: 400 MG, UNK
     Dates: start: 20050225, end: 20050519
  6. RIFAMPICIN [Suspect]
     Dosage: 300 MG, UNK
     Route: 048
     Dates: start: 20050325, end: 20050401
  7. RIFAMPICIN [Suspect]
     Dosage: 450 MG, UNK
     Route: 048
     Dates: start: 20050401, end: 20050513
  8. ESANBUTOL [Suspect]
     Indication: TUBERCULOSIS
     Dosage: 750 MG, UNK
     Route: 048
     Dates: start: 20050218, end: 20050221
  9. PYRAZINAMIDE [Suspect]
     Dosage: 1500 MG, UNK
     Route: 048
     Dates: start: 20050306, end: 20050513
  10. RIFAMPICIN [Suspect]
     Dosage: 150 MG, UNK
     Route: 048
     Dates: start: 20050312, end: 20050325

REACTIONS (9)
  - RASH [None]
  - FATIGUE [None]
  - PRURITUS [None]
  - JAUNDICE [None]
  - DECREASED APPETITE [None]
  - HEPATITIS FULMINANT [None]
  - GAIT DISTURBANCE [None]
  - OEDEMA PERIPHERAL [None]
  - ABDOMINAL DISTENSION [None]
